FAERS Safety Report 7273332-X (Version None)
Quarter: 2011Q1

REPORT INFORMATION
  Report Type: 
  Country: None (occurrence: None)
  Receive Date: 20110203
  Receipt Date: 20101018
  Transmission Date: 20110831
  Serious: No
  Sender: FDA-Public Use
  Company Number: US-ABBOTT-10P-163-0679251-00

PATIENT
  Sex: Female
  Weight: 115.77 kg

DRUGS (5)
  1. ABILIFY [Concomitant]
     Indication: PRODUCT USED FOR UNKNOWN INDICATION
  2. SYNTHROID [Suspect]
     Indication: HYPOTHYROIDISM
     Dates: start: 20091001, end: 20100901
  3. SYNTHROID [Suspect]
     Dates: start: 20070101, end: 20090101
  4. KLONOPIN [Concomitant]
     Indication: BIPOLAR I DISORDER
  5. SYNTHROID [Suspect]
     Dates: start: 20100901

REACTIONS (8)
  - DROOLING [None]
  - INSOMNIA [None]
  - THYROID FUNCTION TEST ABNORMAL [None]
  - ALOPECIA [None]
  - WEIGHT INCREASED [None]
  - FATIGUE [None]
  - MYALGIA [None]
  - MENSTRUATION IRREGULAR [None]
